FAERS Safety Report 8806390 (Version 3)
Quarter: 2013Q4

REPORT INFORMATION
  Report Type: Spontaneous
  Country: US (occurrence: US)
  Receive Date: 20120925
  Receipt Date: 20131210
  Transmission Date: 20140711
  Serious: Yes (Hospitalization)
  Sender: FDA-Public Use
  Company Number: US-BAYER-2012-098182

PATIENT
  Age: 44 Year
  Sex: Female

DRUGS (8)
  1. YAZ [Suspect]
     Dosage: UNK
     Dates: start: 201002
  2. YASMIN [Suspect]
     Indication: CONTRACEPTION
     Dosage: UNK
     Dates: start: 201002
  3. HYDROCHLOROTHIAZIDE [Concomitant]
     Indication: HYPERTENSION
     Dosage: 12.5 MG, QD
     Route: 048
     Dates: start: 20101223
  4. KCL [Concomitant]
     Indication: MUSCLE SPASMS
     Dosage: 20 MEQ, QD
     Route: 048
     Dates: start: 20101223
  5. LISINOPRIL [Concomitant]
     Indication: HYPERTENSION
     Dosage: 20 MG, QD
     Route: 048
     Dates: start: 20101223
  6. FIORICET [Concomitant]
     Indication: HEADACHE
  7. LOPRESSOR [Concomitant]
     Dosage: 50 MG, BID
     Route: 048
  8. POTASSIUM [Concomitant]

REACTIONS (6)
  - Cerebrovascular accident [None]
  - Injury [None]
  - Off label use [None]
  - Pain [None]
  - Fear [None]
  - Pain [None]
